FAERS Safety Report 23263394 (Version 1)
Quarter: 2023Q4

REPORT INFORMATION
  Report Type: Spontaneous
  Country: US (occurrence: None)
  Receive Date: 20231204
  Receipt Date: 20231204
  Transmission Date: 20240110
  Serious: Yes (Other)
  Sender: FDA-Public Use
  Company Number: None

PATIENT
  Age: 56 Year
  Sex: Male
  Weight: 90 kg

DRUGS (1)
  1. ATENOLOL [Suspect]
     Active Substance: ATENOLOL
     Indication: Supraventricular tachycardia
     Dosage: OTHER QUANTITY : 1 TABLET(S);?FREQUENCY : AT BEDTIME;?
     Route: 048

REACTIONS (5)
  - Drug ineffective [None]
  - Arthralgia [None]
  - Chest pain [None]
  - Palpitations [None]
  - Product substitution issue [None]

NARRATIVE: CASE EVENT DATE: 20230628
